FAERS Safety Report 20607524 (Version 1)
Quarter: 2022Q1

REPORT INFORMATION
  Report Type: Report from Study
  Country: US (occurrence: US)
  Receive Date: 20220317
  Receipt Date: 20220317
  Transmission Date: 20220423
  Serious: No
  Sender: FDA-Public Use
  Company Number: US-ORPHANEU-2020005442

PATIENT

DRUGS (3)
  1. CARBAGLU [Suspect]
     Active Substance: CARGLUMIC ACID
     Indication: Urea cycle disorder
     Dosage: 1800 MILLIGRAM, TID
     Route: 048
     Dates: start: 20200331
  2. CARBAGLU [Suspect]
     Active Substance: CARGLUMIC ACID
     Dosage: TAKES 11 TABLETS IN THE MORNING, 10 TABLETS AFTERNOON AND 11 TABLETS AT NIGHT TIME
  3. CARBAGLU [Suspect]
     Active Substance: CARGLUMIC ACID
     Dosage: ELEVEN 200 MG TABLETS IN THE MORNING, TEN 200 MG TABLETS IN THE AFTERNOON AND ELEVEN 200 MG TABLETS
     Route: 048

REACTIONS (2)
  - Weight increased [Unknown]
  - Suspected COVID-19 [Unknown]

NARRATIVE: CASE EVENT DATE: 20200101
